FAERS Safety Report 9757641 (Version 1)
Quarter: 2013Q4

REPORT INFORMATION
  Report Type: Spontaneous
  Country: US (occurrence: US)
  Receive Date: 20131216
  Receipt Date: 20131216
  Transmission Date: 20140711
  Serious: No
  Sender: FDA-Public Use
  Company Number: US-BIOGENIDEC-2013BI118808

PATIENT
  Sex: Male

DRUGS (1)
  1. TYSABRI [Suspect]
     Indication: MULTIPLE SCLEROSIS
     Route: 042
     Dates: start: 20131024

REACTIONS (4)
  - General symptom [Not Recovered/Not Resolved]
  - Muscle twitching [Not Recovered/Not Resolved]
  - Walking aid user [Not Recovered/Not Resolved]
  - Restless legs syndrome [Not Recovered/Not Resolved]
